FAERS Safety Report 9525772 (Version 2)
Quarter: 2013Q4

REPORT INFORMATION
  Report Type: Report from Study
  Country: US (occurrence: US)
  Receive Date: 20130916
  Receipt Date: 20131125
  Transmission Date: 20140711
  Serious: Yes (Hospitalization)
  Sender: FDA-Public Use
  Company Number: US-BIOGENIDEC-2013BI087209

PATIENT
  Age: 60 Year
  Sex: Female
  Weight: 87 kg

DRUGS (16)
  1. TYSABRI [Suspect]
     Indication: MULTIPLE SCLEROSIS
     Route: 042
     Dates: start: 20090602, end: 20130725
  2. TYSABRI [Suspect]
     Indication: MULTIPLE SCLEROSIS
     Route: 042
     Dates: start: 20130911
  3. ZOCOR [Concomitant]
     Route: 048
     Dates: start: 20110304
  4. ZIAC [Concomitant]
     Route: 048
     Dates: start: 20110304
  5. ZIAC [Concomitant]
     Route: 048
  6. ASPIRIN [Concomitant]
     Route: 048
     Dates: start: 20110304
  7. ESTRADIOL [Concomitant]
     Dates: start: 20110523
  8. VITAMIN C [Concomitant]
     Route: 048
     Dates: start: 20110304
  9. VITAMIN D3 [Concomitant]
     Route: 048
     Dates: start: 20110304
  10. FISH OIL [Concomitant]
     Route: 048
     Dates: start: 20110304
  11. NEURONTIN [Concomitant]
     Route: 048
     Dates: start: 20120830
  12. LYRICA [Concomitant]
     Route: 048
     Dates: start: 20120404
  13. CARBAMAZEPINE [Concomitant]
     Route: 048
     Dates: start: 20130313
  14. ZOFRAN [Concomitant]
     Indication: NAUSEA
     Route: 048
     Dates: start: 20130409
  15. BACLOFEN [Concomitant]
     Route: 048
     Dates: start: 20130513
  16. LIDODERM [Concomitant]
     Route: 064
     Dates: start: 20130412

REACTIONS (1)
  - Arthritis [Recovered/Resolved]
